FAERS Safety Report 21627284 (Version 1)
Quarter: 2022Q4

REPORT INFORMATION
  Report Type: Spontaneous
  Country: CA (occurrence: CA)
  Receive Date: 20221122
  Receipt Date: 20221122
  Transmission Date: 20230113
  Serious: Yes (Life-Threatening, Hospitalization, Disabling)
  Sender: FDA-Public Use
  Company Number: None

PATIENT
  Age: 81 Year
  Sex: Male

DRUGS (21)
  1. DOCETAXEL [Suspect]
     Active Substance: DOCETAXEL
     Indication: Product used for unknown indication
     Dosage: SOLUTION INTRAVENOUS
  2. ACETAMINOPHEN [Concomitant]
     Active Substance: ACETAMINOPHEN
  3. CALCIUM [Concomitant]
     Active Substance: CALCIUM
  4. COENZYME Q10 [Concomitant]
     Active Substance: DIETARY SUPPLEMENT\UBIDECARENONE
  5. DEXAMETHASONE [Concomitant]
     Active Substance: DEXAMETHASONE
     Route: 065
  6. DIGOXIN [Concomitant]
     Active Substance: DIGOXIN
  7. DUTASTERIDE [Concomitant]
     Active Substance: DUTASTERIDE
  8. HERBALS [Concomitant]
     Active Substance: HERBALS
  9. POLYSACCHARIDE IRON [Concomitant]
  10. HUMALOG [Concomitant]
     Active Substance: INSULIN LISPRO
  11. HYDROMORPHONE [Concomitant]
     Active Substance: HYDROMORPHONE
  12. JANUMET XR [Concomitant]
     Active Substance: METFORMIN HYDROCHLORIDE\SITAGLIPTIN PHOSPHATE
     Dosage: EXTENDED RELEASE TABLET
  13. LANTUS [Concomitant]
     Active Substance: INSULIN GLARGINE
     Route: 058
  14. LEUPROLIDE [Concomitant]
     Active Substance: LEUPROLIDE
  15. METOPROLOL [Concomitant]
     Active Substance: METOPROLOL
     Route: 065
  16. VITAMINS [Concomitant]
     Active Substance: VITAMINS
  17. PREDNISONE [Concomitant]
     Active Substance: PREDNISONE
  18. PROBIOTICS NOS [Concomitant]
     Active Substance: PROBIOTICS NOS
  19. VITAMIN C [Concomitant]
     Active Substance: ASCORBIC ACID
  20. VITAMIN D [Concomitant]
     Active Substance: VITAMIN D NOS
  21. WARFARIN [Concomitant]
     Active Substance: WARFARIN

REACTIONS (3)
  - Bedridden [Unknown]
  - Dysstasia [Unknown]
  - Weight bearing difficulty [Unknown]
